FAERS Safety Report 5205029-1 (Version None)
Quarter: 2007Q1

REPORT INFORMATION
  Report Type: 
  Country: None (occurrence: None)
  Receive Date: 20070110
  Receipt Date: 20061006
  Transmission Date: 20070707
  Serious: No
  Sender: FDA-Public Use
  Company Number: US-BRISTOL-MYERS SQUIBB COMPANY-13533468

PATIENT
  Age: 11 Year
  Sex: Male
  Weight: 32 kg

DRUGS (2)
  1. ABILIFY [Suspect]
     Indication: BIPOLAR DISORDER
     Dosage: 2 TO 3 TIMES A DAY
  2. CLONIDINE [Concomitant]

REACTIONS (3)
  - FEELING ABNORMAL [None]
  - HYPOKINESIA [None]
  - WEIGHT INCREASED [None]
